FAERS Safety Report 24742476 (Version 11)
Quarter: 2025Q4

REPORT INFORMATION
  Report Type: Report from Study
  Country: CO (occurrence: CO)
  Receive Date: 20241217
  Receipt Date: 20251209
  Transmission Date: 20260118
  Serious: Yes (Other)
  Sender: MIRUM PHARMACEUTICALS
  Company Number: CO-MIRUM PHARMACEUTICALS, INC.-CO-MIR-24-00933

PATIENT
  Age: 12 Year
  Sex: Male

DRUGS (7)
  1. LIVMARLI [Suspect]
     Active Substance: MARALIXIBAT CHLORIDE
     Indication: Alagille syndrome
     Dosage: 1 MILLILITER, QD
     Route: 048
     Dates: start: 20250814
  2. LIVMARLI [Suspect]
     Active Substance: MARALIXIBAT CHLORIDE
     Dosage: 0.7 MILLILITER, QD
     Route: 048
     Dates: start: 20250808, end: 20250813
  3. LIVMARLI [Suspect]
     Active Substance: MARALIXIBAT CHLORIDE
     Dosage: 0.7 MILLILITER, QD
     Route: 048
     Dates: start: 20250512, end: 20250623
  4. LIVMARLI [Suspect]
     Active Substance: MARALIXIBAT CHLORIDE
     Dosage: 0.5 MILLILITER, QD
     Route: 048
     Dates: start: 20241203, end: 20250205
  5. LIVMARLI [Suspect]
     Active Substance: MARALIXIBAT CHLORIDE
     Dosage: 1 MILLILITER, QD
     Route: 048
     Dates: start: 20241013, end: 20241202
  6. LIVMARLI [Suspect]
     Active Substance: MARALIXIBAT CHLORIDE
     Dosage: 0.5 MILLILITER, QD
     Route: 048
     Dates: start: 20241005, end: 20241012
  7. VITAMIN K [Concomitant]
     Active Substance: PHYTONADIONE
     Indication: Product used for unknown indication
     Dosage: UNK UNKNOWN, UNK
     Route: 065

REACTIONS (21)
  - Blood alkaline phosphatase increased [Not Recovered/Not Resolved]
  - Blood cholesterol increased [Not Recovered/Not Resolved]
  - Gamma-glutamyltransferase increased [Not Recovered/Not Resolved]
  - Aspartate aminotransferase increased [Not Recovered/Not Resolved]
  - Bilirubin conjugated increased [Not Recovered/Not Resolved]
  - Alanine aminotransferase increased [Not Recovered/Not Resolved]
  - Bile acids increased [Not Recovered/Not Resolved]
  - Dizziness [Recovered/Resolved]
  - Dizziness [Recovered/Resolved]
  - Dizziness [Recovered/Resolved]
  - Vomiting [Recovered/Resolved]
  - Nausea [Recovered/Resolved]
  - Depressed mood [Recovered/Resolved]
  - Listless [Not Recovered/Not Resolved]
  - Jaundice [Recovering/Resolving]
  - Pruritus [Recovering/Resolving]
  - Insurance issue [Recovered/Resolved]
  - Therapy interrupted [Recovered/Resolved]
  - Insurance issue [Recovered/Resolved]
  - Therapy interrupted [Recovered/Resolved]
  - Intentional dose omission [Unknown]

NARRATIVE: CASE EVENT DATE: 20241005
